FAERS Safety Report 16689910 (Version 4)
Quarter: 2019Q4

REPORT INFORMATION
  Report Type: Report from Study
  Country: GB (occurrence: GB)
  Receive Date: 20190809
  Receipt Date: 20191120
  Transmission Date: 20200122
  Serious: Yes (Other)
  Sender: FDA-Public Use
  Company Number: PHHY2019GB145838

PATIENT
  Sex: Female

DRUGS (1)
  1. COSENTYX [Suspect]
     Active Substance: SECUKINUMAB
     Indication: PSORIATIC ARTHROPATHY
     Dosage: 150 MG, QW
     Route: 065
     Dates: start: 20190611

REACTIONS (16)
  - Pigmentation disorder [Not Recovered/Not Resolved]
  - Oral infection [Not Recovered/Not Resolved]
  - Lower respiratory tract infection [Not Recovered/Not Resolved]
  - Dry mouth [Not Recovered/Not Resolved]
  - Crepitations [Not Recovered/Not Resolved]
  - Snoring [Unknown]
  - Epistaxis [Not Recovered/Not Resolved]
  - Injection site pain [Unknown]
  - Pneumonia [Not Recovered/Not Resolved]
  - Nasal congestion [Not Recovered/Not Resolved]
  - Drug ineffective [Not Recovered/Not Resolved]
  - Swelling face [Recovering/Resolving]
  - Depressed mood [Not Recovered/Not Resolved]
  - Muscular weakness [Unknown]
  - Oral disorder [Not Recovered/Not Resolved]
  - Oral pain [Not Recovered/Not Resolved]
